FAERS Safety Report 20101534 (Version 1)
Quarter: 2021Q4

REPORT INFORMATION
  Report Type: Spontaneous
  Country: IT (occurrence: IT)
  Receive Date: 20211123
  Receipt Date: 20211123
  Transmission Date: 20220303
  Serious: Yes (Hospitalization, Other)
  Sender: FDA-Public Use
  Company Number: IT-LUPIN PHARMACEUTICALS INC.-2021-22574

PATIENT
  Age: 31 Year
  Sex: Female

DRUGS (1)
  1. HYDROXYCHLOROQUINE SULFATE [Suspect]
     Active Substance: HYDROXYCHLOROQUINE SULFATE
     Indication: Arthritis
     Dosage: 200 MILLIGRAM, BID (TABLET)
     Route: 065

REACTIONS (11)
  - Exposure during pregnancy [Unknown]
  - Abortion spontaneous [Unknown]
  - Intrauterine infection [Unknown]
  - Bacterial infection [Unknown]
  - Vaginal haemorrhage [Unknown]
  - Tremor [Unknown]
  - Chills [Unknown]
  - Pyrexia [Unknown]
  - Stomatitis [Unknown]
  - Oropharyngeal pain [Unknown]
  - Abdominal pain [Unknown]
